FAERS Safety Report 16830596 (Version 1)
Quarter: 2019Q3

REPORT INFORMATION
  Report Type: Spontaneous
  Country: US (occurrence: US)
  Receive Date: 20190920
  Receipt Date: 20190920
  Transmission Date: 20191005
  Serious: Yes (Other)
  Sender: FDA-Public Use
  Company Number: US-BEH-2019106865

PATIENT
  Sex: Female

DRUGS (14)
  1. MULTIVITAMINS [VITAMINS NOS] [Concomitant]
     Active Substance: VITAMINS
  2. RITALIN [Concomitant]
     Active Substance: METHYLPHENIDATE HYDROCHLORIDE
  3. HIZENTRA [Suspect]
     Active Substance: HUMAN IMMUNOGLOBULIN G
     Indication: IMMUNODEFICIENCY
     Dosage: 25 MILLILITER, BIW
     Route: 058
     Dates: start: 20150819
  4. HIZENTRA [Suspect]
     Active Substance: HUMAN IMMUNOGLOBULIN G
     Dosage: UNK
     Route: 058
  5. HIZENTRA [Suspect]
     Active Substance: HUMAN IMMUNOGLOBULIN G
     Dosage: UNK
     Route: 058
  6. ALPRAZOLAM. [Concomitant]
     Active Substance: ALPRAZOLAM
  7. HYDROXYZINE [Concomitant]
     Active Substance: HYDROXYZINE HYDROCHLORIDE
  8. MOTRIN [Concomitant]
     Active Substance: IBUPROFEN
  9. OMEPRAZOLE. [Concomitant]
     Active Substance: OMEPRAZOLE
  10. CLARITIN [CLARITHROMYCIN] [Concomitant]
     Active Substance: CLARITHROMYCIN
  11. DULOXETINE [DULOXETINE HYDROCHLORIDE] [Concomitant]
     Active Substance: DULOXETINE HYDROCHLORIDE
  12. LOSARTAN. [Concomitant]
     Active Substance: LOSARTAN
  13. MONTELUKAST [Concomitant]
     Active Substance: MONTELUKAST SODIUM
  14. VITAMIN D [COLECALCIFEROL] [Concomitant]
     Active Substance: CHOLECALCIFEROL

REACTIONS (2)
  - Haemorrhage [Not Recovered/Not Resolved]
  - Erythema [Not Recovered/Not Resolved]
